FAERS Safety Report 19639328 (Version 3)
Quarter: 2021Q3

REPORT INFORMATION
  Report Type: Spontaneous
  Country: CN (occurrence: CN)
  Receive Date: 20210729
  Receipt Date: 20210923
  Transmission Date: 20211014
  Serious: Yes (Hospitalization)
  Sender: FDA-Public Use
  Company Number: CN-ELI_LILLY_AND_COMPANY-CN202107011676

PATIENT
  Age: 80 Year
  Sex: Female
  Weight: 55 kg

DRUGS (11)
  1. HUMALOG MIX75/25 [Suspect]
     Active Substance: INSULIN LISPRO
     Dosage: 8 U, EACH EVENING (ON AN EMPTY STOMACH)
     Route: 058
  2. HUMALOG MIX75/25 [Suspect]
     Active Substance: INSULIN LISPRO
     Indication: DIABETES MELLITUS
     Dosage: 8 U, EACH MORNING (ON AN EMPTY STOMACH)
     Route: 058
     Dates: start: 2015
  3. GINKGO BILOBA [Concomitant]
     Active Substance: GINKGO
     Indication: PRODUCT USED FOR UNKNOWN INDICATION
  4. HUMALOG MIX75/25 [Suspect]
     Active Substance: INSULIN LISPRO
     Dosage: 8 U, EACH EVENING (EMPTY STOMACH)
     Route: 058
  5. HUMALOG MIX75/25 [Suspect]
     Active Substance: INSULIN LISPRO
     Dosage: 8 U, EACH EVENING
     Route: 058
  6. ACLASTA [Concomitant]
     Active Substance: ZOLEDRONIC ACID
     Indication: PRODUCT USED FOR UNKNOWN INDICATION
  7. HUMALOG MIX75/25 [Suspect]
     Active Substance: INSULIN LISPRO
     Dosage: 6 U, EACH EVENING (ON AN EMPTY STOMACH)
     Route: 058
     Dates: start: 2015
  8. HUMALOG MIX75/25 [Suspect]
     Active Substance: INSULIN LISPRO
     Dosage: 10 U, EACH MORNING (EMPTY STOMACH)
     Route: 058
  9. HUMALOG MIX75/25 [Suspect]
     Active Substance: INSULIN LISPRO
     Dosage: 14 U, EACH MORNING (ON AN EMPTY STOMACH)
     Route: 058
  10. GLUCOBAY [Concomitant]
     Active Substance: ACARBOSE
     Indication: PRODUCT USED FOR UNKNOWN INDICATION
  11. HUMALOG MIX75/25 [Suspect]
     Active Substance: INSULIN LISPRO
     Dosage: 14 U, EACH MORNING (ON AN EMPTY STOMACH)
     Route: 058

REACTIONS (23)
  - Road traffic accident [Unknown]
  - Limb injury [Unknown]
  - Palpitations [Unknown]
  - Panic attack [Unknown]
  - Vision blurred [Unknown]
  - Blood glucose abnormal [Unknown]
  - Blood glucose increased [Recovering/Resolving]
  - Somnolence [Unknown]
  - Headache [Unknown]
  - Hypoglycaemia [Unknown]
  - Blood glucose increased [Unknown]
  - Insulin-requiring type 2 diabetes mellitus [Unknown]
  - Cataract [Unknown]
  - Product dose omission issue [Unknown]
  - Injection site pain [Unknown]
  - Asthenia [Unknown]
  - Weight decreased [Not Recovered/Not Resolved]
  - Presbyopia [Unknown]
  - Hyperhidrosis [Unknown]
  - Injection site haemorrhage [Unknown]
  - Body height decreased [Unknown]
  - General physical health deterioration [Unknown]
  - Blood glucose fluctuation [Unknown]

NARRATIVE: CASE EVENT DATE: 20180420
